FAERS Safety Report 6901029-1 (Version None)
Quarter: 2010Q3

REPORT INFORMATION
  Report Type: 
  Country: None (occurrence: None)
  Receive Date: 20100803
  Receipt Date: 20100721
  Transmission Date: 20110219
  Serious: Yes (Other)
  Sender: FDA-Public Use
  Company Number: PHHY2010NL49184

PATIENT
  Sex: Male

DRUGS (2)
  1. ZOMETA [Suspect]
     Dosage: 4 MG/5 ML
     Route: 042
     Dates: start: 20090727
  2. ZOMETA [Suspect]
     Dosage: 4 MG/5 ML
     Route: 042
     Dates: start: 20100721

REACTIONS (13)
  - DEAFNESS [None]
  - EYE DISORDER [None]
  - EYE SWELLING [None]
  - HEADACHE [None]
  - JAW DISORDER [None]
  - METASTASES TO BONE [None]
  - OSTEONECROSIS OF JAW [None]
  - SWELLING [None]
  - SWELLING FACE [None]
  - TOOTH EXTRACTION [None]
  - TOOTH FRACTURE [None]
  - TOOTHACHE [None]
  - VIITH NERVE PARALYSIS [None]
